FAERS Safety Report 5098966-2 (Version None)
Quarter: 2006Q3

REPORT INFORMATION
  Report Type: 
  Country: None (occurrence: None)
  Receive Date: 20060907
  Receipt Date: 20060829
  Transmission Date: 20061208
  Serious: Yes (Hospitalization)
  Sender: FDA-Public Use
  Company Number: JP-ABBOTT-06P-087-0342806-00

PATIENT
  Sex: Male

DRUGS (5)
  1. KLARICID DRY SYRUP [Suspect]
     Indication: RHINITIS
     Route: 048
     Dates: start: 20060826, end: 20060828
  2. KLARICID DRY SYRUP [Suspect]
     Indication: PNEUMONIA
  3. PRANLUKAST HYDRATE [Concomitant]
     Indication: DRUG USE FOR UNKNOWN INDICATION
     Route: 048
     Dates: start: 20060828, end: 20060829
  4. AMBROXOL HYDROCHLORIDE [Concomitant]
     Indication: DRUG USE FOR UNKNOWN INDICATION
     Route: 048
     Dates: start: 20060828, end: 20060829
  5. TULOBUTEROL [Concomitant]
     Indication: DRUG USE FOR UNKNOWN INDICATION
     Route: 062
     Dates: start: 20060828, end: 20060829

REACTIONS (2)
  - ASTHMA [None]
  - CHEST PAIN [None]
